FAERS Safety Report 6713405-0 (Version None)
Quarter: 2010Q2

REPORT INFORMATION
  Report Type: 
  Country: None (occurrence: None)
  Receive Date: 20100506
  Receipt Date: 20100428
  Transmission Date: 20101027
  Serious: Yes (Other)
  Sender: FDA-Public Use
  Company Number: RO-ROCHE-700142

PATIENT
  Sex: Female

DRUGS (2)
  1. PEGINTERFERON ALFA-2A [Suspect]
     Route: 058
     Dates: start: 20100218, end: 20100327
  2. RIBAVIRIN [Suspect]
     Route: 048
     Dates: start: 20100218, end: 20100327

REACTIONS (3)
  - ARTHRALGIA [None]
  - DEPRESSION [None]
  - MENTAL DISORDER [None]
